FAERS Safety Report 10121154 (Version 4)
Quarter: 2014Q3

REPORT INFORMATION
  Report Type: Report from Study
  Country: US (occurrence: US)
  Receive Date: 20140425
  Receipt Date: 20140723
  Transmission Date: 20150326
  Serious: Yes (Hospitalization, Other)
  Sender: FDA-Public Use
  Company Number: PHHO2014US006031

PATIENT
  Age: 64 Year
  Sex: Male
  Weight: 93.8 kg

DRUGS (4)
  1. CYTARABINE. [Suspect]
     Active Substance: CYTARABINE
     Dosage: 100 MG/M2/ DAY (DAY 1-7)
     Route: 042
     Dates: start: 20140409
  2. TASIGNA [Suspect]
     Active Substance: NILOTINIB
     Indication: ACUTE MYELOID LEUKAEMIA
     Dosage: 300 MG, BID (DAY 4-14)
     Route: 048
     Dates: start: 20140409
  3. DAUNORUBICIN [Suspect]
     Active Substance: DAUNORUBICIN
     Indication: ACUTE MYELOID LEUKAEMIA
     Dosage: 60 MG/M2, (DAYS 1-3)
     Route: 042
     Dates: start: 20140409
  4. CYTARABINE. [Suspect]
     Active Substance: CYTARABINE
     Indication: ACUTE MYELOID LEUKAEMIA
     Dosage: 25 MG/M2/DAY (DAY 1)
     Route: 042
     Dates: start: 20140409

REACTIONS (7)
  - Pneumonia [Unknown]
  - Sepsis [Recovered/Resolved]
  - Lung infection [Unknown]
  - Confusional state [Recovered/Resolved]
  - Hypotension [Recovered/Resolved]
  - Malignant neoplasm progression [Recovered/Resolved]
  - Respiratory failure [Recovering/Resolving]

NARRATIVE: CASE EVENT DATE: 20140409
